FAERS Safety Report 5317514-2 (Version None)
Quarter: 2007Q2

REPORT INFORMATION
  Report Type: 
  Country: None (occurrence: None)
  Receive Date: 20070507
  Receipt Date: 20070424
  Transmission Date: 20071010
  Serious: Yes (Hospitalization, Other)
  Sender: FDA-Public Use
  Company Number: PHRM2007FR00964

PATIENT
  Age: 76 Year
  Sex: Female
  Weight: 70 kg

DRUGS (3)
  1. EXELON [Suspect]
     Indication: DEMENTIA ALZHEIMER'S TYPE
     Dosage: 6 MG, ONCE/SINGLE
     Route: 048
     Dates: start: 20070125, end: 20070125
  2. EXELON [Suspect]
     Dosage: 3 MG.DAY
     Route: 048
     Dates: start: 20061215, end: 20070115
  3. EXELON [Suspect]
     Dosage: 6 MG/DAY
     Route: 048
     Dates: start: 20070116, end: 20070124

REACTIONS (8)
  - ATRIAL FIBRILLATION [None]
  - BLOOD PRESSURE SYSTOLIC DECREASED [None]
  - BRADYCARDIA [None]
  - CIRCULATORY COLLAPSE [None]
  - HYPOTENSION [None]
  - INCORRECT DOSE ADMINISTERED [None]
  - SYNCOPE [None]
  - VOMITING [None]
